FAERS Safety Report 12676047 (Version 3)
Quarter: 2019Q3

REPORT INFORMATION
  Report Type: Spontaneous
  Country: DE (occurrence: DE)
  Receive Date: 20160823
  Receipt Date: 20190911
  Transmission Date: 20191004
  Serious: Yes (Other)
  Sender: FDA-Public Use
  Company Number: DE-AUROBINDO-AUR-APL-2016-10408

PATIENT

DRUGS (5)
  1. LAMICTAL [Suspect]
     Active Substance: LAMOTRIGINE
     Dosage: 100 MILLIGRAM, ONCE A DAY
     Route: 063
     Dates: start: 20150826, end: 20160517
  2. LAMICTAL [Suspect]
     Active Substance: LAMOTRIGINE
     Indication: EPILEPSY
     Dosage: 100 MILLIGRAM, ONCE A DAY (50 MG, 2X/DAY (BID))
     Route: 063
     Dates: start: 2016
  3. LEVETIRACETAM. [Suspect]
     Active Substance: LEVETIRACETAM
     Dosage: 2250 MG, TWO TIMES A DAY
     Route: 063
     Dates: start: 2016
  4. LEVETIRACETAM. [Suspect]
     Active Substance: LEVETIRACETAM
     Dosage: UNK
     Route: 064
     Dates: start: 20150826, end: 20160517
  5. LEVETIRACETAM. [Suspect]
     Active Substance: LEVETIRACETAM
     Indication: EPILEPSY
     Dosage: 2000 MG, TWO TIMES A DAY
     Route: 063
     Dates: start: 2016, end: 2016

REACTIONS (7)
  - Gastrooesophageal reflux disease [Not Recovered/Not Resolved]
  - Foetal exposure during pregnancy [Unknown]
  - Urinary tract infection [Unknown]
  - Weight gain poor [Unknown]
  - Exposure via breast milk [Unknown]
  - Dehydration [Recovered/Resolved]
  - Selective eating disorder [Not Recovered/Not Resolved]

NARRATIVE: CASE EVENT DATE: 20150826
